FAERS Safety Report 9650313 (Version 2)
Quarter: 2013Q4

REPORT INFORMATION
  Report Type: Spontaneous
  Country: US (occurrence: US)
  Receive Date: 20131028
  Receipt Date: 20131028
  Transmission Date: 20140711
  Serious: Yes (Other)
  Sender: FDA-Public Use
  Company Number: US-NAPPMUNDI-USA-2012-0092381

PATIENT
  Age: 48 Year
  Sex: Male
  Weight: 97.51 kg

DRUGS (11)
  1. OXYCONTIN (NDA 22-272) [Suspect]
     Indication: PAIN
     Dosage: 40 MG, BID
     Route: 048
     Dates: start: 201202
  2. OXYCONTIN (NDA 22-272) [Suspect]
     Dosage: 60 MG, BID
     Route: 048
     Dates: start: 20120613, end: 20120712
  3. OXYCONTIN TABLETS [Suspect]
     Indication: BACK PAIN
     Dosage: 30 MG, BID
     Route: 048
  4. OXYCONTIN TABLETS [Suspect]
     Indication: HEPATITIS C
  5. ADDERALL [Concomitant]
     Indication: ATTENTION DEFICIT/HYPERACTIVITY DISORDER
     Dosage: 20 MG, AM
     Route: 048
     Dates: start: 2009
  6. ADDERALL [Concomitant]
     Dosage: 60 MG, DAILY
     Route: 048
  7. XANAX [Concomitant]
     Indication: PANIC DISORDER
     Dosage: 2 MG, UNK
     Dates: start: 20090902
  8. XANAX [Concomitant]
     Indication: ANXIETY
     Dosage: 1 TABLET, 5 OR 6 TIMES DAILY
     Route: 048
  9. OXYCODONE [Concomitant]
     Indication: BACK PAIN
     Dosage: 15 MG, TID
     Route: 048
     Dates: start: 201112
  10. OXYCODONE [Concomitant]
     Indication: HEPATITIS C
  11. KEPPRA [Concomitant]
     Indication: EPILEPSY
     Dosage: 1000 MG, AM
     Route: 048
     Dates: start: 20100401

REACTIONS (8)
  - Abdominal pain [Recovered/Resolved with Sequelae]
  - Hepatic pain [Unknown]
  - Musculoskeletal pain [Unknown]
  - Arthralgia [Recovered/Resolved with Sequelae]
  - Haematochezia [Recovered/Resolved with Sequelae]
  - Abnormal loss of weight [Unknown]
  - Medication residue present [Unknown]
  - Drug effect decreased [Unknown]
